FAERS Safety Report 21021811 (Version 1)
Quarter: 2022Q2

REPORT INFORMATION
  Report Type: Spontaneous
  Country: US (occurrence: US)
  Receive Date: 20220629
  Receipt Date: 20220629
  Transmission Date: 20220721
  Serious: Yes (Hospitalization)
  Sender: FDA-Public Use
  Company Number: US-BAYER-2022A086440

PATIENT
  Age: 75 Year
  Sex: Female

DRUGS (1)
  1. KERENDIA [Suspect]
     Active Substance: FINERENONE
     Dosage: 10 MG
     Dates: start: 2022

REACTIONS (6)
  - Myasthenia gravis [None]
  - Diplopia [None]
  - Facial pain [None]
  - Headache [None]
  - Eye disorder [None]
  - Eye pain [None]

NARRATIVE: CASE EVENT DATE: 20220101
